FAERS Safety Report 17502665 (Version 2)
Quarter: 2020Q2

REPORT INFORMATION
  Report Type: Spontaneous
  Country: US (occurrence: US)
  Receive Date: 20200305
  Receipt Date: 20200407
  Transmission Date: 20200713
  Serious: Yes (Other)
  Sender: FDA-Public Use
  Company Number: US-PFIZER INC-2020098448

PATIENT
  Age: 44 Year
  Sex: Female

DRUGS (1)
  1. IBRANCE [Suspect]
     Active Substance: PALBOCICLIB
     Indication: BREAST CANCER FEMALE
     Dosage: 125 MG, CYCLIC DAILY 21 DAYS ON 7 DAYS OFF
     Dates: start: 20200204

REACTIONS (4)
  - Neuropathy peripheral [Unknown]
  - Fatigue [Unknown]
  - Alopecia [Unknown]
  - Oral pain [Unknown]
